FAERS Safety Report 4906315-2 (Version None)
Quarter: 2006Q1

REPORT INFORMATION
  Report Type: 
  Country: None (occurrence: None)
  Receive Date: 20060209
  Receipt Date: 20060127
  Transmission Date: 20060701
  Serious: Yes (Disabling)
  Sender: FDA-Public Use
  Company Number: CH-JNJFOC-20060105726

PATIENT
  Sex: Male

DRUGS (2)
  1. HALDOL [Suspect]
     Indication: DRUG USE FOR UNKNOWN INDICATION
     Route: 048
  2. VALIUM [Concomitant]
     Indication: DRUG USE FOR UNKNOWN INDICATION
     Route: 048

REACTIONS (4)
  - FEAR [None]
  - MUSCULOSKELETAL STIFFNESS [None]
  - OROPHARYNGEAL SPASM [None]
  - TONGUE SPASM [None]
